FAERS Safety Report 8319499-3 (Version None)
Quarter: 2012Q1

REPORT INFORMATION
  Report Type: 
  Country: None (occurrence: None)
  Receive Date: 20120315
  Receipt Date: 20110228
  Transmission Date: 20120608
  Serious: No
  Sender: FDA-Public Use
  Company Number: PHHY2011US05390

PATIENT
  Age: 52 Year
  Sex: Female
  Weight: 83.6 kg

DRUGS (7)
  1. LEXAPRO [Concomitant]
  2. OXYBUTYNIN [Concomitant]
  3. MIRAPEX [Concomitant]
  4. GILENYA [Suspect]
     Indication: MULTIPLE SCLEROSIS
     Dosage: 0.5 MG, QD, ORAL
     Route: 048
     Dates: start: 20101231
  5. AMBCET (AMBROXOL HYDROCHLORIDE, CETIRIZINE) [Concomitant]
  6. ASPIRIN [Concomitant]
  7. LORTAB [Concomitant]

REACTIONS (1)
  - OEDEMA PERIPHERAL [None]
